FAERS Safety Report 24731212 (Version 1)
Quarter: 2024Q4

REPORT INFORMATION
  Report Type: Spontaneous
  Country: NL (occurrence: NL)
  Receive Date: 20241213
  Receipt Date: 20241213
  Transmission Date: 20250114
  Serious: Yes (Hospitalization)
  Sender: PRINSTON PHARMACEUTICAL
  Company Number: NL-PRINSTON PHARMACEUTICAL INC.-2024PRN00440

PATIENT
  Age: 69 Year
  Sex: Female

DRUGS (3)
  1. ACYCLOVIR [Suspect]
     Active Substance: ACYCLOVIR
     Indication: Varicella zoster virus infection
     Dosage: 10 MG/KG, 3X/DAY
     Route: 042
  2. CYCLOSPORINE [Suspect]
     Active Substance: CYCLOSPORINE
     Indication: Renal transplant
  3. MYCOPHENOLIC ACID [Suspect]
     Active Substance: MYCOPHENOLIC ACID
     Indication: Renal transplant

REACTIONS (1)
  - Neurotoxicity [Recovered/Resolved]
